FAERS Safety Report 12191203 (Version 1)
Quarter: 2016Q1

REPORT INFORMATION
  Report Type: Spontaneous
  Country: US (occurrence: US)
  Receive Date: 20160318
  Receipt Date: 20160318
  Transmission Date: 20160526
  Serious: Yes (Other)
  Sender: FDA-Public Use
  Company Number: US-BANPHARM-20164738

PATIENT
  Age: 88 Year
  Sex: Male
  Weight: 92.99 kg

DRUGS (4)
  1. TEMAZEPAM. [Concomitant]
     Active Substance: TEMAZEPAM
  2. ALEVE [Suspect]
     Active Substance: NAPROXEN SODIUM
     Indication: PAIN
     Dosage: 2 DF, PRN,
     Route: 048
  3. VIROXYN [Concomitant]
  4. THYROID PILL [Concomitant]

REACTIONS (4)
  - Wrong technique in product usage process [Unknown]
  - Vomiting [Unknown]
  - Dizziness [Unknown]
  - Choking [Unknown]
